FAERS Safety Report 4808328-8 (Version None)
Quarter: 2005Q4

REPORT INFORMATION
  Report Type: 
  Country: None (occurrence: None)
  Receive Date: 20051025
  Receipt Date: 20051018
  Transmission Date: 20060501
  Serious: Yes (Life-Threatening)
  Sender: FDA-Public Use
  Company Number: 2005AP05478

PATIENT
  Age: 39 Year
  Sex: Female

DRUGS (1)
  1. ZOLADEX [Suspect]
     Indication: ADENOMYOSIS
     Route: 058

REACTIONS (2)
  - CORONARY ARTERY DISSECTION [None]
  - CORONARY ARTERY OCCLUSION [None]
